FAERS Safety Report 19264887 (Version 3)
Quarter: 2021Q2

REPORT INFORMATION
  Report Type: Spontaneous
  Country: US (occurrence: US)
  Receive Date: 20210517
  Receipt Date: 20210526
  Transmission Date: 20210717
  Serious: Yes (Other)
  Sender: FDA-Public Use
  Company Number: US-MYLANLABS-2021M1027730

PATIENT
  Sex: Female

DRUGS (29)
  1. OLOPATADINE HYDROCHLORIDE. [Concomitant]
     Active Substance: OLOPATADINE HYDROCHLORIDE
     Indication: SNEEZING
  2. OLOPATADINE HYDROCHLORIDE. [Concomitant]
     Active Substance: OLOPATADINE HYDROCHLORIDE
     Indication: NASAL CONGESTION
  3. ZAFIRLUKAST. [Concomitant]
     Active Substance: ZAFIRLUKAST
     Indication: WHEEZING
  4. FAMOTIDINE. [Concomitant]
     Active Substance: FAMOTIDINE
     Indication: PRODUCT USED FOR UNKNOWN INDICATION
     Dosage: UNK, BID (MORN AND AFTERNOON)
  5. NASONEX [Concomitant]
     Active Substance: MOMETASONE FUROATE
     Indication: RHINORRHOEA
  6. BYSTOLIC [Concomitant]
     Active Substance: NEBIVOLOL HYDROCHLORIDE
     Indication: HYPERTENSION
     Dosage: 10 MILLIGRAM, QD
  7. TELMISARTAN HCTZ [Concomitant]
     Active Substance: HYDROCHLOROTHIAZIDE\TELMISARTAN
     Indication: HYPERTENSION
     Dosage: UNK, QD (1 D AFTEROON)
     Dates: start: 20180614
  8. GABAPENTIN. [Concomitant]
     Active Substance: GABAPENTIN
     Indication: NEURALGIA
     Dosage: 1/2 MORN AND 1/2 EVEN
  9. VITAMIN D3 [Concomitant]
     Active Substance: CHOLECALCIFEROL
     Indication: HYPERSENSITIVITY
     Dosage: UNK, BID (MORNING,PM)
  10. ACETAMINOPHEN. [Concomitant]
     Active Substance: ACETAMINOPHEN
     Indication: PAIN
     Dosage: UNK, TID (1MORN, 1PM 1 AFTERNOON)
  11. MUPIROCIN. [Concomitant]
     Active Substance: MUPIROCIN
     Indication: PRODUCT USED FOR UNKNOWN INDICATION
     Dosage: UNK UNK, BID
     Dates: start: 202103
  12. ZAFIRLUKAST. [Concomitant]
     Active Substance: ZAFIRLUKAST
     Indication: RHINITIS
     Dosage: UNK, BID (2D MORN AND AFTERNOON)
     Dates: start: 20210426
  13. IPRATROPIUM [Concomitant]
     Active Substance: IPRATROPIUM
     Indication: PRODUCT USED FOR UNKNOWN INDICATION
     Dosage: UNK, QID (MORNING, NOON, AFTERNOON, NIGHT )
  14. OLOPATADINE HYDROCHLORIDE. [Concomitant]
     Active Substance: OLOPATADINE HYDROCHLORIDE
     Indication: RHINITIS
     Dosage: UNK, BID (MORNING, PAM)
  15. MELATONIN [Concomitant]
     Active Substance: MELATONIN
     Indication: PRODUCT USED FOR UNKNOWN INDICATION
     Dosage: UNK UNK, PRN 1/2 TAB
  16. EQUATE SALINE [Concomitant]
     Indication: PRODUCT USED FOR UNKNOWN INDICATION
     Dosage: UNK, TID (MORNING/AFTERNOON/PM)
  17. TUSSIN DM [Concomitant]
     Active Substance: DEXTROMETHORPHAN HYDROBROMIDE\GUAIFENESIN
     Indication: COUGH
     Dosage: UNK, PM (1 TSP)
  18. LEVOXYL [Concomitant]
     Active Substance: LEVOTHYROXINE SODIUM
     Indication: THYROID HORMONES DECREASED
     Dosage: UNK, AM
     Dates: start: 20200213
  19. AMLODIPINE [Concomitant]
     Active Substance: AMLODIPINE BESYLATE
     Indication: HYPERTENSION
     Dosage: UNK, AM
     Dates: start: 20200707
  20. METHOCARBAMOL. [Concomitant]
     Active Substance: METHOCARBAMOL
     Indication: MUSCLE SPASMS
     Dosage: UNK, BID (1 EVERY 12 HOURS)
  21. VITAMIN B50 COMPLEX [Concomitant]
     Active Substance: BIOTIN\CALCIUM PANTOTHENATE\CHOLINE BITARTRATE\CYANOCOBALAMIN\FOLIC ACID\INOSITOL\NIACINAMIDE\PYRIDOXINE\RIBOFLAVIN\THIAMINE
     Indication: VITAMIN SUPPLEMENTATION
     Dosage: UNK UNK, QD
     Dates: start: 20210105
  22. METHOTREXATE (METHOTREXATE SODIUM) [Suspect]
     Active Substance: METHOTREXATE SODIUM
     Indication: RHEUMATOID ARTHRITIS
     Dosage: 2.5 MILLIGRAM, QW
     Route: 048
  23. FOLIC ACID. [Concomitant]
     Active Substance: FOLIC ACID
     Indication: RED BLOOD CELL COUNT DECREASED
     Dosage: UNK UNK, QD (1 D AFTERNOON)
  24. ZAFIRLUKAST. [Concomitant]
     Active Substance: ZAFIRLUKAST
     Indication: DYSPNOEA
  25. MAGNESIUM OXIDE. [Concomitant]
     Active Substance: MAGNESIUM OXIDE
     Indication: BLOOD MAGNESIUM DECREASED
     Dosage: UNK, BID
     Dates: start: 20190420
  26. NASONEX [Concomitant]
     Active Substance: MOMETASONE FUROATE
     Indication: SEASONAL ALLERGY
     Dosage: UNK, QD
  27. NASONEX [Concomitant]
     Active Substance: MOMETASONE FUROATE
     Indication: SNEEZING
  28. HYOSCYAMINE. [Concomitant]
     Active Substance: HYOSCYAMINE
     Indication: BLADDER DISORDER
     Dosage: UNK, AM  (MONRING)
     Dates: start: 201904
  29. ASPIRIN 81 [Concomitant]
     Active Substance: ASPIRIN
     Indication: PRODUCT USED FOR UNKNOWN INDICATION
     Dosage: UNK UNK, QOD (ON EVERY OTHER DAY (AFTERNOON)

REACTIONS (6)
  - Dyspnoea [Unknown]
  - Circumstance or information capable of leading to medication error [Unknown]
  - Fatigue [Not Recovered/Not Resolved]
  - Drug ineffective [Not Recovered/Not Resolved]
  - Confusional state [Not Recovered/Not Resolved]
  - Cognitive disorder [Unknown]
